FAERS Safety Report 19532964 (Version 1)
Quarter: 2021Q3

REPORT INFORMATION
  Report Type: Spontaneous
  Country: ES (occurrence: ES)
  Receive Date: 20210713
  Receipt Date: 20210713
  Transmission Date: 20211014
  Serious: Yes (Death)
  Sender: FDA-Public Use
  Company Number: ES-MYLANLABS-2021M1040476

PATIENT
  Age: 63 Year
  Sex: Male

DRUGS (5)
  1. FUROSEMIDE MYLAN [Suspect]
     Active Substance: FUROSEMIDE
     Indication: BENIGN PROSTATIC HYPERPLASIA
     Dosage: 80 MILLIGRAM
  2. CALCITONIN [Suspect]
     Active Substance: CALCITONIN
     Indication: BENIGN PROSTATIC HYPERPLASIA
     Dosage: UNK (INFUSED 90 U/H)
  3. SODIUM CHLORIDE. [Suspect]
     Active Substance: SODIUM CHLORIDE
     Indication: BENIGN PROSTATIC HYPERPLASIA
     Dosage: UNK (TOTAL INFUSION 5500 ML)
  4. PAMIDRONATE DISODIUM. [Suspect]
     Active Substance: PAMIDRONATE DISODIUM
     Indication: BENIGN PROSTATIC HYPERPLASIA
     Dosage: 60 MILLIGRAM
  5. METHYLPREDNISOLONE SODIUM SUCCINATE. [Suspect]
     Active Substance: METHYLPREDNISOLONE SODIUM SUCCINATE
     Indication: BENIGN PROSTATIC HYPERPLASIA
     Dosage: 120 MILLIGRAM

REACTIONS (1)
  - Drug ineffective [Fatal]
